FAERS Safety Report 4541867-6 (Version None)
Quarter: 2004Q4

REPORT INFORMATION
  Report Type: 
  Country: None (occurrence: None)
  Receive Date: 20041230
  Receipt Date: 20041220
  Transmission Date: 20050328
  Serious: Yes (Hospitalization)
  Sender: FDA-Public Use
  Company Number: PHFR2004GB04640

PATIENT
  Sex: Female

DRUGS (7)
  1. LACTULOSE [Concomitant]
     Indication: CONSTIPATION
     Dosage: 15 MG, BID
     Route: 048
  2. PERSANTIN [Suspect]
     Indication: MYOCARDIAL ISCHAEMIA
     Dosage: 200 MG, BID
     Route: 065
  3. ACETYLSALICYLIC ACID (NGX) [Suspect]
     Indication: MYOCARDIAL ISCHAEMIA
     Dosage: 75 MG, QD
     Route: 065
  4. AMLODIPINE [Concomitant]
     Indication: BLOOD PRESSURE INCREASED
     Dosage: 5 MG, QD
     Route: 048
  5. THYROXINE [Concomitant]
     Indication: HYPOTHYROIDISM
     Dosage: 25 UG, QD
  6. CO-AMILOFRUSE [Concomitant]
     Indication: BLOOD PRESSURE INCREASED
     Dosage: 5/40MG OD
     Route: 048
  7. DICLOFENAC [Suspect]
     Indication: ARTHRITIS
     Dosage: 50 MG, TID

REACTIONS (3)
  - FATIGUE [None]
  - HAEMOGLOBIN DECREASED [None]
  - IRON DEFICIENCY ANAEMIA [None]
